FAERS Safety Report 23428865 (Version 1)
Quarter: 2024Q1

REPORT INFORMATION
  Report Type: Spontaneous
  Country: CN (occurrence: CN)
  Receive Date: 20240122
  Receipt Date: 20240122
  Transmission Date: 20240410
  Serious: Yes (Other)
  Sender: FDA-Public Use
  Company Number: CN-PFIZER INC-PV202400006047

PATIENT
  Age: 76 Year
  Sex: Male
  Weight: 50 kg

DRUGS (3)
  1. VFEND [Suspect]
     Active Substance: VORICONAZOLE
     Indication: Antifungal treatment
     Dosage: 0.200 G, 2X/DAY
     Route: 041
     Dates: start: 20231220, end: 20231225
  2. VFEND [Suspect]
     Active Substance: VORICONAZOLE
     Dosage: 0.150 G, 2X/DAY
     Route: 041
     Dates: start: 20231225, end: 20240102
  3. VORICONAZOLE [Suspect]
     Active Substance: VORICONAZOLE
     Indication: Antifungal treatment
     Dosage: 0.200 G, 2X/DAY
     Route: 041
     Dates: start: 20231218, end: 20231220

REACTIONS (6)
  - Mental disorder [Recovering/Resolving]
  - Delirium [Recovering/Resolving]
  - Logorrhoea [Recovering/Resolving]
  - Insomnia [Recovering/Resolving]
  - Somnolence [Unknown]
  - Drug level increased [Unknown]

NARRATIVE: CASE EVENT DATE: 20231221
